FAERS Safety Report 14430718 (Version 2)
Quarter: 2018Q4

REPORT INFORMATION
  Report Type: Spontaneous
  Country: FR (occurrence: FR)
  Receive Date: 20180124
  Receipt Date: 20181026
  Transmission Date: 20190204
  Serious: Yes (Other)
  Sender: FDA-Public Use
  Company Number: FR-MERCK KGAA-2040673

PATIENT
  Age: 51 Year
  Sex: Female

DRUGS (1)
  1. EUTHYROX [Suspect]
     Active Substance: LEVOTHYROXINE SODIUM
     Indication: THYROIDECTOMY
     Dates: start: 2017

REACTIONS (10)
  - Fatigue [None]
  - Crying [None]
  - Disturbance in attention [None]
  - Mental impairment [None]
  - Feeling abnormal [None]
  - Headache [None]
  - Irritability [None]
  - Insomnia [None]
  - Nervousness [None]
  - Blood thyroid stimulating hormone decreased [None]

NARRATIVE: CASE EVENT DATE: 2017
